FAERS Safety Report 13180169 (Version 1)
Quarter: 2017Q1

REPORT INFORMATION
  Report Type: Spontaneous
  Country: NO (occurrence: NO)
  Receive Date: 20170202
  Receipt Date: 20170202
  Transmission Date: 20170428
  Serious: Yes (Death, Hospitalization, Other)
  Sender: FDA-Public Use
  Company Number: NO-PFIZER INC-2017045827

PATIENT
  Age: 84 Year
  Sex: Female

DRUGS (9)
  1. FRAGMIN [Suspect]
     Active Substance: DALTEPARIN SODIUM
     Indication: ATRIAL FIBRILLATION
     Dosage: 5000 IU/KG, 2X/DAY
     Route: 058
     Dates: start: 201612
  2. KALEORID [Concomitant]
     Active Substance: POTASSIUM CHLORIDE
     Route: 048
  3. FURIX [Concomitant]
     Active Substance: FUROSEMIDE
     Route: 048
  4. VITAMIN B12 [Concomitant]
     Active Substance: CYANOCOBALAMIN
  5. TRAJENTA [Concomitant]
     Active Substance: LINAGLIPTIN
     Route: 048
  6. ZOPICLONE ACTAVIS [Concomitant]
     Active Substance: ZOPICLONE
     Route: 048
  7. PARACET [Concomitant]
     Active Substance: ACETAMINOPHEN
     Route: 048
  8. ISOPTIN [Concomitant]
     Active Substance: VERAPAMIL HYDROCHLORIDE
     Route: 048
  9. DUROFERON [Concomitant]
     Active Substance: FERROUS SULFATE
     Route: 048

REACTIONS (2)
  - Subdural haematoma [Fatal]
  - Fall [Unknown]
